FAERS Safety Report 6491002-2 (Version None)
Quarter: 2009Q4

REPORT INFORMATION
  Report Type: 
  Country: None (occurrence: None)
  Receive Date: 20091211
  Receipt Date: 20091201
  Transmission Date: 20100525
  Serious: Yes (Hospitalization)
  Sender: FDA-Public Use
  Company Number: US-ROCHE-673277

PATIENT
  Sex: Female

DRUGS (3)
  1. BEVACIZUMAB [Suspect]
     Indication: NON-SMALL CELL LUNG CANCER
     Dosage: 15 MG/KG OVER 30-90 MIN, Q3W
     Route: 042
     Dates: start: 20091014
  2. VINORELBINE [Suspect]
     Indication: NON-SMALL CELL LUNG CANCER
     Dosage: 30 MG/M2/DAY OVER 10 MIN, D1+AMP;8/Q3W
     Route: 065
     Dates: start: 20091014
  3. CISPLATIN [Suspect]
     Indication: NON-SMALL CELL LUNG CANCER
     Dosage: 75 MG/M2 OVER 60 MIN
     Route: 042
     Dates: start: 20091014

REACTIONS (2)
  - ARRHYTHMIA [None]
  - ATRIAL FLUTTER [None]
